FAERS Safety Report 25996299 (Version 1)
Quarter: 2025Q4

REPORT INFORMATION
  Report Type: Report from Study
  Country: US (occurrence: US)
  Receive Date: 20251104
  Receipt Date: 20251104
  Transmission Date: 20260117
  Serious: Yes (Other)
  Sender: MALLINCKRODT
  Company Number: US-MALLINCKRODT-MNK202506655

PATIENT
  Sex: Female

DRUGS (1)
  1. CORTICOTROPIN [Suspect]
     Active Substance: CORTICOTROPIN
     Indication: Neurotrophic keratopathy
     Dosage: UNKNOWN

REACTIONS (4)
  - Corneal transplant [Unknown]
  - Nerve injury [Unknown]
  - Lethargy [Unknown]
  - Injection site pain [Unknown]
